FAERS Safety Report 8849963 (Version 1)
Quarter: 2012Q4

REPORT INFORMATION
  Report Type: Report from Study
  Country: US (occurrence: US)
  Receive Date: 20121019
  Receipt Date: 20121019
  Transmission Date: 20130627
  Serious: Yes (Hospitalization)
  Sender: FDA-Public Use
  Company Number: US-ROCHE-1147008

PATIENT
  Age: 84 Year
  Sex: Female
  Weight: 66.28 kg

DRUGS (1)
  1. CAPECITABINE [Suspect]
     Indication: COLORECTAL CANCER METASTATIC
     Route: 048
     Dates: start: 20120815

REACTIONS (2)
  - Breast lump removal [Unknown]
  - Nausea [Unknown]
